FAERS Safety Report 6415405-7 (Version None)
Quarter: 2009Q4

REPORT INFORMATION
  Report Type: 
  Country: None (occurrence: None)
  Receive Date: 20091027
  Receipt Date: 20091015
  Transmission Date: 20100525
  Serious: Yes (Hospitalization)
  Sender: FDA-Public Use
  Company Number: US-JNJFOC-20091002364

PATIENT
  Age: 3 Month
  Sex: Male
  Weight: 6.8 kg

DRUGS (2)
  1. TYLENOL (CAPLET) [Suspect]
     Route: 048
  2. TYLENOL (CAPLET) [Suspect]
     Indication: TEETHING
     Route: 048

REACTIONS (7)
  - EATING DISORDER [None]
  - INITIAL INSOMNIA [None]
  - IRRITABILITY [None]
  - JAUNDICE [None]
  - PYREXIA [None]
  - SALMONELLOSIS [None]
  - TRANSMISSION OF AN INFECTIOUS AGENT VIA A MEDICINAL PRODUCT [None]
